FAERS Safety Report 7150862-2 (Version None)
Quarter: 2010Q4

REPORT INFORMATION
  Report Type: 
  Country: None (occurrence: None)
  Receive Date: 20101207
  Receipt Date: 20101207
  Transmission Date: 20110411
  Serious: No
  Sender: FDA-Public Use
  Company Number: None

PATIENT
  Sex: Female
  Weight: 45.1 kg

DRUGS (1)
  1. PEGINTERFERON ALFA-2B [Suspect]
     Dosage: 2199.5 MCG

REACTIONS (2)
  - DRUG TOXICITY [None]
  - PLATELET COUNT DECREASED [None]
